FAERS Safety Report 21723297 (Version 2)
Quarter: 2022Q4

REPORT INFORMATION
  Report Type: Spontaneous
  Country: SI (occurrence: SI)
  Receive Date: 20221213
  Receipt Date: 20221213
  Transmission Date: 20230113
  Serious: Yes (Other)
  Sender: FDA-Public Use
  Company Number: SI-SLATE RUN PHARMACEUTICALS-22SI001438

PATIENT

DRUGS (24)
  1. AZITHROMYCIN [Suspect]
     Active Substance: AZITHROMYCIN
     Indication: Plasma cell mastitis
     Dosage: UNK
  2. AZITHROMYCIN [Suspect]
     Active Substance: AZITHROMYCIN
     Indication: Corynebacterium infection
  3. AZITHROMYCIN [Suspect]
     Active Substance: AZITHROMYCIN
     Indication: Staphylococcal abscess
  4. VANCOMYCIN HYDROCHLORIDE [Suspect]
     Active Substance: VANCOMYCIN HYDROCHLORIDE
     Indication: Plasma cell mastitis
     Dosage: UNK
  5. VANCOMYCIN HYDROCHLORIDE [Suspect]
     Active Substance: VANCOMYCIN HYDROCHLORIDE
     Indication: Corynebacterium infection
  6. VANCOMYCIN HYDROCHLORIDE [Suspect]
     Active Substance: VANCOMYCIN HYDROCHLORIDE
     Indication: Staphylococcal abscess
  7. CIPROFLOXACIN [Suspect]
     Active Substance: CIPROFLOXACIN
     Indication: Plasma cell mastitis
     Dosage: UNK
  8. CIPROFLOXACIN [Suspect]
     Active Substance: CIPROFLOXACIN
     Indication: Corynebacterium infection
  9. CIPROFLOXACIN [Suspect]
     Active Substance: CIPROFLOXACIN
     Indication: Staphylococcal abscess
  10. CLINDAMYCIN [Suspect]
     Active Substance: CLINDAMYCIN
     Indication: Plasma cell mastitis
     Dosage: UNK
  11. CLINDAMYCIN [Suspect]
     Active Substance: CLINDAMYCIN
     Indication: Corynebacterium infection
  12. CLINDAMYCIN [Suspect]
     Active Substance: CLINDAMYCIN
     Indication: Staphylococcal abscess
  13. TEICOPLANIN [Suspect]
     Active Substance: TEICOPLANIN
     Indication: Plasma cell mastitis
     Dosage: UNK
  14. TEICOPLANIN [Suspect]
     Active Substance: TEICOPLANIN
     Indication: Corynebacterium infection
  15. TEICOPLANIN [Suspect]
     Active Substance: TEICOPLANIN
     Indication: Staphylococcal abscess
  16. DEXAMETHASONE [Suspect]
     Active Substance: DEXAMETHASONE
     Indication: Plasma cell mastitis
     Dosage: 8 MILLIGRAM, QD
     Route: 048
  17. DEXAMETHASONE [Suspect]
     Active Substance: DEXAMETHASONE
     Indication: Corynebacterium infection
  18. DEXAMETHASONE [Suspect]
     Active Substance: DEXAMETHASONE
     Indication: Staphylococcal abscess
  19. METHOTREXATE [Suspect]
     Active Substance: METHOTREXATE
     Indication: Staphylococcal abscess
     Dosage: 10 MILLIGRAM, 1/WEEK
  20. METHOTREXATE [Suspect]
     Active Substance: METHOTREXATE
     Indication: Plasma cell mastitis
  21. METHOTREXATE [Suspect]
     Active Substance: METHOTREXATE
     Indication: Corynebacterium infection
  22. FOLIC ACID [Suspect]
     Active Substance: FOLIC ACID
     Indication: Corynebacterium infection
     Dosage: 5 MILLIGRAM
  23. FOLIC ACID [Suspect]
     Active Substance: FOLIC ACID
     Indication: Plasma cell mastitis
  24. FOLIC ACID [Suspect]
     Active Substance: FOLIC ACID
     Indication: Staphylococcal abscess

REACTIONS (5)
  - Cushing^s syndrome [Unknown]
  - Adrenal insufficiency [Recovered/Resolved]
  - Off label use [Recovered/Resolved]
  - Rash [Unknown]
  - Drug ineffective for unapproved indication [Recovered/Resolved]
